FAERS Safety Report 7706697-2 (Version None)
Quarter: 2011Q3

REPORT INFORMATION
  Report Type: 
  Country: None (occurrence: None)
  Receive Date: 20110824
  Receipt Date: 20110812
  Transmission Date: 20111222
  Serious: Yes (Other)
  Sender: FDA-Public Use
  Company Number: BR-PFIZER INC-2011186931

PATIENT
  Age: 39 Year
  Sex: Female

DRUGS (1)
  1. PRISTIQ [Suspect]
     Dosage: UNK
     Route: 048

REACTIONS (7)
  - OBSESSIVE-COMPULSIVE DISORDER [None]
  - FEELING OF DESPAIR [None]
  - DIZZINESS [None]
  - MANIA [None]
  - MALAISE [None]
  - SUICIDE ATTEMPT [None]
  - ANXIETY [None]
